FAERS Safety Report 23559642 (Version 2)
Quarter: 2024Q1

REPORT INFORMATION
  Report Type: Spontaneous
  Country: BR (occurrence: None)
  Receive Date: 20240223
  Receipt Date: 20240327
  Transmission Date: 20240409
  Serious: Yes (Other)
  Sender: FDA-Public Use
  Company Number: 2024A040463

PATIENT
  Age: 21354 Day
  Sex: Female
  Weight: 84 kg

DRUGS (1)
  1. IRESSA [Suspect]
     Active Substance: GEFITINIB
     Indication: EGFR gene mutation
     Route: 048
     Dates: start: 20221224, end: 20231214

REACTIONS (13)
  - Inflammation [Recovered/Resolved]
  - Impaired healing [Unknown]
  - Rash [Unknown]
  - Dry skin [Unknown]
  - Peripheral coldness [Unknown]
  - Alopecia [Unknown]
  - Madarosis [Unknown]
  - Genital candidiasis [Unknown]
  - Oral candidiasis [Unknown]
  - Furuncle [Unknown]
  - Diarrhoea [Unknown]
  - Onychomadesis [Unknown]
  - Nail avulsion [Unknown]

NARRATIVE: CASE EVENT DATE: 20230107
